FAERS Safety Report 9707756 (Version 1)
Quarter: 2013Q2

REPORT INFORMATION
  Report Type: Spontaneous
  Country: US (occurrence: None)
  Receive Date: 20130610
  Receipt Date: 20130610
  Transmission Date: 20140414
  Serious: Yes (Other)
  Sender: FDA-Public Use
  Company Number: KAMADA LTD MFR # 38422

PATIENT
  Age: 49 Year
  Sex: Female
  Weight: 71.4 kg

DRUGS (5)
  1. GLASSIA [Suspect]
     Indication: ALPHA-1 ANTI-TRYPSIN DEFICIENCY
     Dosage: 4282MG+/- 10%
     Route: 042
     Dates: start: 20110401
  2. SPIRIVA (TIOTRIPIUM) [Concomitant]
  3. ALBUTEROL [Concomitant]
  4. RITALIN (METHYLPHENIDATE) [Concomitant]
  5. LEXAPRO (EXCITALOPRAM OXALATE) [Concomitant]

REACTIONS (6)
  - Dehydration [None]
  - Fluid intake reduced [None]
  - Narcolepsy [None]
  - Insomnia [None]
  - Fatigue [None]
  - Malaise [None]
